FAERS Safety Report 21945554 (Version 2)
Quarter: 2023Q1

REPORT INFORMATION
  Report Type: Spontaneous
  Country: US (occurrence: US)
  Receive Date: 20230202
  Receipt Date: 20230306
  Transmission Date: 20230417
  Serious: Yes (Hospitalization, Other)
  Sender: FDA-Public Use
  Company Number: US-BRISTOL-MYERS SQUIBB COMPANY-2023-015671

PATIENT
  Age: 86 Year
  Sex: Male
  Weight: 64.41 kg

DRUGS (12)
  1. REVLIMID [Suspect]
     Active Substance: LENALIDOMIDE
     Indication: Plasma cell myeloma
     Dosage: FREQUENCY- ONCE DAILY FOR 21 DAYS.
     Route: 048
  2. REVLIMID [Suspect]
     Active Substance: LENALIDOMIDE
     Dosage: EVERY EOD
     Route: 048
     Dates: start: 20220512
  3. DEXAMETHASONE [Suspect]
     Active Substance: DEXAMETHASONE
     Indication: Plasma cell myeloma
  4. AMLODIPINE [Concomitant]
     Active Substance: AMLODIPINE BESYLATE
     Indication: Product used for unknown indication
     Route: 048
  5. ASPIRIN [Concomitant]
     Active Substance: ASPIRIN
     Indication: Product used for unknown indication
     Dosage: 1 ORAL EVERY DAY
     Route: 048
  6. ATORVASTATIN [Concomitant]
     Active Substance: ATORVASTATIN
     Indication: Product used for unknown indication
     Dosage: 1 ORAL EVERY DAY
     Route: 048
  7. ELIQUIS [Concomitant]
     Active Substance: APIXABAN
     Indication: Product used for unknown indication
     Route: 048
  8. BUMETANIDE [Concomitant]
     Active Substance: BUMETANIDE
     Indication: Product used for unknown indication
     Dosage: 1 ORAL EVERY DAY
     Route: 048
  9. FAMOTIDINE [Concomitant]
     Active Substance: FAMOTIDINE
     Indication: Gastrooesophageal reflux disease
     Dosage: TAKE ONE PILL DAILY IN THE AM TO PREVENT ACID REFLUX
  10. METOPROLOL TARTRATE [Concomitant]
     Active Substance: METOPROLOL TARTRATE
     Dosage: 1 ORAL TWICE A DAY
  11. POTASSIUM CHLORIDE [Concomitant]
     Active Substance: POTASSIUM CHLORIDE
     Dosage: TAKE ONE PILL DAILY FOR 3 DAYS
  12. VITAMIN D3 [Concomitant]
     Active Substance: CHOLECALCIFEROL
     Dosage: 25 MCG ( 1000 UNIT ) TABLET?1 ORAL EVERY DAY
     Route: 048

REACTIONS (10)
  - Decreased appetite [Unknown]
  - Oedema peripheral [Recovered/Resolved]
  - Ageusia [Unknown]
  - Asthenia [Unknown]
  - Fatigue [Unknown]
  - Weight decreased [Unknown]
  - Acute kidney injury [Recovered/Resolved]
  - Hypotension [Unknown]
  - Groin pain [Recovered/Resolved]
  - Deafness [Unknown]
